FAERS Safety Report 7174840-2 (Version None)
Quarter: 2010Q4

REPORT INFORMATION
  Report Type: 
  Country: None (occurrence: None)
  Receive Date: 20101219
  Receipt Date: 20100804
  Transmission Date: 20110411
  Serious: No
  Sender: FDA-Public Use
  Company Number: US-AMGEN-KDL397482

PATIENT

DRUGS (2)
  1. ENBREL [Suspect]
     Dosage: 50 MG, QWK
     Route: 064
     Dates: start: 20071101
  2. PRENATAL VITAMINS [Concomitant]
     Dosage: UNK UNK, UNK

REACTIONS (2)
  - EAR INFECTION [None]
  - NASOPHARYNGITIS [None]
